FAERS Safety Report 17456916 (Version 7)
Quarter: 2024Q1

REPORT INFORMATION
  Report Type: Spontaneous
  Country: US (occurrence: US)
  Receive Date: 20200225
  Receipt Date: 20240207
  Transmission Date: 20240410
  Serious: No
  Sender: FDA-Public Use
  Company Number: US-PFIZER INC-2020082163

PATIENT
  Age: 69 Year
  Sex: Female
  Weight: 66.213 kg

DRUGS (5)
  1. IBRANCE [Suspect]
     Active Substance: PALBOCICLIB
     Indication: Breast cancer metastatic
     Dosage: 125 MG, CYCLIC (ONCE A DAY FOR 21 DAYS)
     Route: 048
     Dates: start: 20190312, end: 20190510
  2. IBRANCE [Suspect]
     Active Substance: PALBOCICLIB
     Dosage: 100 MG (ONCE A DAY FOR 21 DAYS/TAKE ONE DAILY BY MOUTH FOR 21 DAYS AND OFF FOR SEVEN)
     Route: 048
     Dates: start: 20190606
  3. IBRANCE [Suspect]
     Active Substance: PALBOCICLIB
     Dosage: TAKE 125 MG DAILY DAYS 1-21 OF 28 DAY CYCLE
  4. IBRANCE [Suspect]
     Active Substance: PALBOCICLIB
     Dosage: 100 MG, DAILY ON DAYS 1 THROUGH 21 OF A 28-DAY TREATMENT CYCLE
     Route: 048
  5. FASLODEX [Concomitant]
     Active Substance: FULVESTRANT
     Dosage: UNK, MONTHLY (2 INJECTIONS OF EACH ONCE A MONTH)

REACTIONS (5)
  - Abdominal discomfort [Unknown]
  - Nasal congestion [Unknown]
  - Vertigo [Unknown]
  - Dizziness [Unknown]
  - Product dose omission issue [Unknown]

NARRATIVE: CASE EVENT DATE: 20200223
